FAERS Safety Report 7993694-5 (Version None)
Quarter: 2011Q4

REPORT INFORMATION
  Report Type: 
  Country: None (occurrence: None)
  Receive Date: 20111219
  Receipt Date: 20060904
  Transmission Date: 20120403
  Serious: Yes (Hospitalization)
  Sender: FDA-Public Use
  Company Number: PHHY2006CA04893

PATIENT

DRUGS (1)
  1. EXELON [Suspect]

REACTIONS (1)
  - DRUG INTOLERANCE [None]
